FAERS Safety Report 13746779 (Version 36)
Quarter: 2020Q3

REPORT INFORMATION
  Report Type: Spontaneous
  Country: US (occurrence: US)
  Receive Date: 20170712
  Receipt Date: 20200825
  Transmission Date: 20201102
  Serious: Yes (Life-Threatening, Hospitalization, Other)
  Sender: FDA-Public Use
  Company Number: US-ACTELION-A-NJ2017-156416

PATIENT
  Age: 68 Year
  Sex: Female
  Weight: 56.69 kg

DRUGS (18)
  1. VELETRI [Suspect]
     Active Substance: EPOPROSTENOL
     Dosage: 18 NG/KG, PER MIN
     Route: 042
  2. ORENITRAM [Suspect]
     Active Substance: TREPROSTINIL
     Indication: PRODUCT USED FOR UNKNOWN INDICATION
     Route: 065
  3. DEMADEX [Concomitant]
     Active Substance: TORSEMIDE
  4. OPSUMIT [Suspect]
     Active Substance: MACITENTAN
     Dosage: 10 MG, QD
     Route: 048
     Dates: start: 20140801
  5. IMURAN [Concomitant]
     Active Substance: AZATHIOPRINE
     Dosage: 150 MG, QD
  6. LEVOTHYROXIN [Concomitant]
     Active Substance: LEVOTHYROXINE
     Dosage: 100 MCG, QD
  7. VELETRI [Suspect]
     Active Substance: EPOPROSTENOL
     Dosage: 18 NG/KG, PER MIN
     Route: 042
  8. ADCIRCA [Concomitant]
     Active Substance: TADALAFIL
  9. PREDNISONE. [Concomitant]
     Active Substance: PREDNISONE
     Dosage: 20 MG, QD
  10. ASPIRIN. [Concomitant]
     Active Substance: ASPIRIN
     Dosage: 81 MG, QD
  11. SPIRONOLACTONE. [Concomitant]
     Active Substance: SPIRONOLACTONE
  12. ELIQUIS [Concomitant]
     Active Substance: APIXABAN
  13. PLAVIX [Concomitant]
     Active Substance: CLOPIDOGREL BISULFATE
     Dosage: 75 MG, QD
  14. OPSUMIT [Suspect]
     Active Substance: MACITENTAN
     Indication: PULMONARY ARTERIAL HYPERTENSION
     Dosage: 10 MG, QD
     Route: 048
  15. VELETRI [Suspect]
     Active Substance: EPOPROSTENOL
     Indication: PULMONARY ARTERIAL HYPERTENSION
     Dosage: 18 NG/KG, PER MIN
     Route: 042
  16. VELETRI [Suspect]
     Active Substance: EPOPROSTENOL
     Dosage: 18 NG/KG, PER MIN
     Route: 042
  17. NIFEDIPINE. [Concomitant]
     Active Substance: NIFEDIPINE
  18. ALDACTONE [Concomitant]
     Active Substance: SPIRONOLACTONE
     Dosage: 25 MG, QD

REACTIONS (51)
  - Nausea [Recovered/Resolved]
  - Syncope [Recovered/Resolved]
  - Dizziness [Unknown]
  - Loss of consciousness [Unknown]
  - Cardiac pacemaker insertion [Unknown]
  - Sinusitis [Unknown]
  - Peripheral vascular disorder [Unknown]
  - Multiple allergies [Not Recovered/Not Resolved]
  - Malaise [Unknown]
  - Pericardial effusion [Unknown]
  - Abdominal distension [Unknown]
  - Condition aggravated [Unknown]
  - Ear congestion [Unknown]
  - Cardiac arrest [Recovered/Resolved]
  - Arrhythmia [Recovered/Resolved]
  - Dyspnoea [Unknown]
  - Diarrhoea [Unknown]
  - Therapy non-responder [Unknown]
  - Oedema [Unknown]
  - Transfusion [Unknown]
  - Ulcer haemorrhage [Recovered/Resolved]
  - Hyperhidrosis [Unknown]
  - Weight decreased [Unknown]
  - Cystitis [Unknown]
  - Ventricular fibrillation [Recovered/Resolved]
  - Transcatheter aortic valve implantation [Unknown]
  - Atrial fibrillation [Unknown]
  - Anaemia [Unknown]
  - Blood pressure increased [Unknown]
  - Heart rate increased [Unknown]
  - Urinary tract infection [Recovered/Resolved]
  - Dehydration [Unknown]
  - Bladder disorder [Recovered/Resolved]
  - Blood lactic acid increased [Recovered/Resolved]
  - Hypotension [Unknown]
  - Haematemesis [Recovered/Resolved]
  - Haematochezia [Recovered/Resolved]
  - Hypoaesthesia [Unknown]
  - Clostridium difficile infection [Unknown]
  - Urosepsis [Recovered/Resolved]
  - Vomiting [Recovered/Resolved]
  - Packed red blood cell transfusion [Unknown]
  - Chest pain [Recovered/Resolved]
  - Memory impairment [Unknown]
  - Fatigue [Unknown]
  - Poisoning [Unknown]
  - Gastrointestinal haemorrhage [Unknown]
  - Haemorrhage [Unknown]
  - Limb injury [Unknown]
  - Catheterisation cardiac [Unknown]
  - Cardioversion [Recovered/Resolved]

NARRATIVE: CASE EVENT DATE: 20170629
